FAERS Safety Report 24924224 (Version 3)
Quarter: 2025Q3

REPORT INFORMATION
  Report Type: Spontaneous
  Country: CA (occurrence: CA)
  Receive Date: 20250204
  Receipt Date: 20250916
  Transmission Date: 20251020
  Serious: Yes (Other)
  Sender: MYLAN
  Company Number: CA-MYLANLABS-202200202911

PATIENT
  Sex: Male

DRUGS (44)
  1. REVATIO [Suspect]
     Active Substance: SILDENAFIL CITRATE
     Indication: Pulmonary arterial hypertension
     Dosage: 20 MILLIGRAM, QD (ONCE A DAY)
     Route: 048
     Dates: start: 20190122
  2. REVATIO [Suspect]
     Active Substance: SILDENAFIL CITRATE
     Dosage: 20 MILLIGRAM, QD (ONCE A DAY)
     Dates: start: 20190122
  3. REVATIO [Suspect]
     Active Substance: SILDENAFIL CITRATE
     Dosage: 20 MILLIGRAM, QD (ONCE A DAY)
     Dates: start: 20190122
  4. REVATIO [Suspect]
     Active Substance: SILDENAFIL CITRATE
     Dosage: 20 MILLIGRAM, QD (ONCE A DAY)
     Route: 048
     Dates: start: 20190122
  5. REVATIO [Suspect]
     Active Substance: SILDENAFIL CITRATE
     Dosage: 20 MILLIGRAM, TID (THREE TIMES A DAY)
     Route: 048
     Dates: start: 20200122
  6. REVATIO [Suspect]
     Active Substance: SILDENAFIL CITRATE
     Dosage: 20 MILLIGRAM, TID (THREE TIMES A DAY)
     Dates: start: 20200122
  7. REVATIO [Suspect]
     Active Substance: SILDENAFIL CITRATE
     Dosage: 20 MILLIGRAM, TID (THREE TIMES A DAY)
     Dates: start: 20200122
  8. REVATIO [Suspect]
     Active Substance: SILDENAFIL CITRATE
     Dosage: 20 MILLIGRAM, TID (THREE TIMES A DAY)
     Route: 048
     Dates: start: 20200122
  9. EZETIMIBE [Concomitant]
     Active Substance: EZETIMIBE
  10. EZETIMIBE [Concomitant]
     Active Substance: EZETIMIBE
     Route: 065
  11. EZETIMIBE [Concomitant]
     Active Substance: EZETIMIBE
     Route: 065
  12. EZETIMIBE [Concomitant]
     Active Substance: EZETIMIBE
  13. LANSOPRAZOLE [Concomitant]
     Active Substance: LANSOPRAZOLE
  14. LANSOPRAZOLE [Concomitant]
     Active Substance: LANSOPRAZOLE
     Route: 065
  15. LANSOPRAZOLE [Concomitant]
     Active Substance: LANSOPRAZOLE
     Route: 065
  16. LANSOPRAZOLE [Concomitant]
     Active Substance: LANSOPRAZOLE
  17. BISOPROLOL [Concomitant]
     Active Substance: BISOPROLOL
  18. BISOPROLOL [Concomitant]
     Active Substance: BISOPROLOL
     Route: 065
  19. BISOPROLOL [Concomitant]
     Active Substance: BISOPROLOL
     Route: 065
  20. BISOPROLOL [Concomitant]
     Active Substance: BISOPROLOL
  21. FUROSEMIDE [Concomitant]
     Active Substance: FUROSEMIDE
  22. FUROSEMIDE [Concomitant]
     Active Substance: FUROSEMIDE
     Route: 065
  23. FUROSEMIDE [Concomitant]
     Active Substance: FUROSEMIDE
     Route: 065
  24. FUROSEMIDE [Concomitant]
     Active Substance: FUROSEMIDE
  25. METHOTREXATE [Concomitant]
     Active Substance: METHOTREXATE
     Dosage: UNK, QW (WEEKLY)
  26. METHOTREXATE [Concomitant]
     Active Substance: METHOTREXATE
     Dosage: UNK, QW (WEEKLY)
     Route: 065
  27. METHOTREXATE [Concomitant]
     Active Substance: METHOTREXATE
     Dosage: UNK, QW (WEEKLY)
     Route: 065
  28. METHOTREXATE [Concomitant]
     Active Substance: METHOTREXATE
     Dosage: UNK, QW (WEEKLY)
  29. ELIQUIS [Concomitant]
     Active Substance: APIXABAN
  30. ELIQUIS [Concomitant]
     Active Substance: APIXABAN
     Route: 065
  31. ELIQUIS [Concomitant]
     Active Substance: APIXABAN
     Route: 065
  32. ELIQUIS [Concomitant]
     Active Substance: APIXABAN
  33. FOLIC ACID [Concomitant]
     Active Substance: FOLIC ACID
  34. FOLIC ACID [Concomitant]
     Active Substance: FOLIC ACID
     Route: 065
  35. FOLIC ACID [Concomitant]
     Active Substance: FOLIC ACID
     Route: 065
  36. FOLIC ACID [Concomitant]
     Active Substance: FOLIC ACID
  37. REPATHA [Concomitant]
     Active Substance: EVOLOCUMAB
  38. REPATHA [Concomitant]
     Active Substance: EVOLOCUMAB
     Route: 065
  39. REPATHA [Concomitant]
     Active Substance: EVOLOCUMAB
     Route: 065
  40. REPATHA [Concomitant]
     Active Substance: EVOLOCUMAB
  41. TYLENOL ARTHRITIS PAIN [Concomitant]
     Active Substance: ACETAMINOPHEN
     Indication: Arthritis
  42. TYLENOL ARTHRITIS PAIN [Concomitant]
     Active Substance: ACETAMINOPHEN
     Route: 065
  43. TYLENOL ARTHRITIS PAIN [Concomitant]
     Active Substance: ACETAMINOPHEN
     Route: 065
  44. TYLENOL ARTHRITIS PAIN [Concomitant]
     Active Substance: ACETAMINOPHEN

REACTIONS (5)
  - Adverse event [Unknown]
  - Ulcer [Not Recovered/Not Resolved]
  - Fine motor skill dysfunction [Unknown]
  - Therapy interrupted [Unknown]
  - Product packaging difficult to open [Unknown]
